FAERS Safety Report 6679316-4 (Version None)
Quarter: 2010Q2

REPORT INFORMATION
  Report Type: 
  Country: None (occurrence: None)
  Receive Date: 20100409
  Receipt Date: 20100325
  Transmission Date: 20101027
  Serious: Yes (Hospitalization, Other)
  Sender: FDA-Public Use
  Company Number: 2010SCPR000369

PATIENT
  Age: 68 Year
  Sex: Male

DRUGS (1)
  1. PERGOLIDE MESYLATE [Suspect]
     Indication: PARKINSON'S DISEASE
     Dosage: 1 MG, BID

REACTIONS (16)
  - ACUTE PULMONARY OEDEMA [None]
  - AORTIC DILATATION [None]
  - AORTIC VALVE CALCIFICATION [None]
  - AORTIC VALVE INCOMPETENCE [None]
  - CARDIAC VALVE DISEASE [None]
  - DYSPNOEA EXERTIONAL [None]
  - DYSPNOEA PAROXYSMAL NOCTURNAL [None]
  - EJECTION FRACTION DECREASED [None]
  - HAEMODIALYSIS [None]
  - HYDRONEPHROSIS [None]
  - MITRAL VALVE INCOMPETENCE [None]
  - OLIGURIA [None]
  - RENAL FAILURE [None]
  - RENAL IMPAIRMENT [None]
  - RETROPERITONEAL FIBROSIS [None]
  - URETERAL DISORDER [None]
